FAERS Safety Report 24466783 (Version 1)
Quarter: 2024Q4

REPORT INFORMATION
  Report Type: Report from Study
  Country: US (occurrence: US)
  Receive Date: 20241018
  Receipt Date: 20241018
  Transmission Date: 20250114
  Serious: No
  Sender: ROCHE
  Company Number: US-ROCHE-3547192

PATIENT
  Sex: Male

DRUGS (5)
  1. XOLAIR [Suspect]
     Active Substance: OMALIZUMAB
     Indication: Pruritus
     Route: 065
  2. DUPIXENT [Concomitant]
     Active Substance: DUPILUMAB
  3. AVEENO [Concomitant]
     Active Substance: DIMETHICONE\HOMOSALATE\OCTINOXATE\OCTISALATE\TITANIUM DIOXIDE
  4. SARNA (UNITED STATES) [Concomitant]
  5. CORTIZONE 10 [Concomitant]
     Active Substance: HYDROCORTISONE

REACTIONS (2)
  - Drug ineffective [Unknown]
  - No adverse event [Unknown]
